FAERS Safety Report 6338359-0 (Version None)
Quarter: 2009Q3

REPORT INFORMATION
  Report Type: 
  Country: None (occurrence: None)
  Receive Date: 20090901
  Receipt Date: 20090817
  Transmission Date: 20100115
  Serious: Yes (Hospitalization)
  Sender: FDA-Public Use
  Company Number: TPA2009A02323

PATIENT
  Age: 57 Year
  Sex: Male
  Weight: 104.7809 kg

DRUGS (7)
  1. PREVACID [Suspect]
     Indication: CROHN'S DISEASE
     Dosage: PER ORAL
     Route: 048
  2. REMICADE [Suspect]
     Indication: CROHN'S DISEASE
     Dosage: 5 MG/KG, 1 IN 1 D, INTRAVENOUS; 5 MG/KG, 1 IN 1 D, INTRAVENOUS; 10 MG/KG, 1 IN 1, INTRAVENOUS
     Route: 042
     Dates: start: 19991116
  3. REMICADE [Suspect]
     Indication: CROHN'S DISEASE
     Dosage: 5 MG/KG, 1 IN 1 D, INTRAVENOUS; 5 MG/KG, 1 IN 1 D, INTRAVENOUS; 10 MG/KG, 1 IN 1, INTRAVENOUS
     Route: 042
     Dates: start: 20010118
  4. REMICADE [Suspect]
     Indication: CROHN'S DISEASE
     Dosage: 5 MG/KG, 1 IN 1 D, INTRAVENOUS; 5 MG/KG, 1 IN 1 D, INTRAVENOUS; 10 MG/KG, 1 IN 1, INTRAVENOUS
     Route: 042
     Dates: start: 20010806
  5. ADALIMUMAB (ADALIMUMAB) [Suspect]
     Indication: CROHN'S DISEASE
  6. ZORBTIVE [Suspect]
     Indication: CROHN'S DISEASE
  7. VITAMINS B12 (CYANOCOBALAMIN) [Suspect]
     Indication: CROHN'S DISEASE

REACTIONS (14)
  - CHEST PAIN [None]
  - DIZZINESS [None]
  - EAR PAIN [None]
  - ELECTROCARDIOGRAM CHANGE [None]
  - HEADACHE [None]
  - HYPERGLYCAEMIA [None]
  - INFUSION RELATED REACTION [None]
  - NAUSEA [None]
  - NEPHROLITHIASIS [None]
  - OEDEMA PERIPHERAL [None]
  - OROPHARYNGEAL PAIN [None]
  - RENAL FAILURE [None]
  - UPPER RESPIRATORY TRACT INFECTION [None]
  - VERTIGO [None]
